FAERS Safety Report 5738902-6 (Version None)
Quarter: 2008Q2

REPORT INFORMATION
  Report Type: 
  Country: None (occurrence: None)
  Receive Date: 20080513
  Receipt Date: 20080501
  Transmission Date: 20081010
  Serious: Yes (Hospitalization)
  Sender: FDA-Public Use
  Company Number: 2005BI018692

PATIENT
  Age: 49 Year
  Sex: Female
  Weight: 78.0187 kg

DRUGS (1)
  1. AVONEX [Suspect]
     Indication: MULTIPLE SCLEROSIS
     Dosage: 30 UG;QW;IM
     Route: 030
     Dates: start: 19960101

REACTIONS (8)
  - DEPRESSION [None]
  - LOSS OF CONSCIOUSNESS [None]
  - MUSCULAR WEAKNESS [None]
  - OSTEOPOROSIS [None]
  - OXYGEN SATURATION DECREASED [None]
  - PULMONARY THROMBOSIS [None]
  - THROMBOSIS [None]
  - TRIGEMINAL NEURALGIA [None]
